FAERS Safety Report 6294636-3 (Version None)
Quarter: 2009Q3

REPORT INFORMATION
  Report Type: 
  Country: None (occurrence: None)
  Receive Date: 20090803
  Receipt Date: 20090720
  Transmission Date: 20100115
  Serious: Yes (Hospitalization)
  Sender: FDA-Public Use
  Company Number: DE-ASTRAZENECA-2009SE05534

PATIENT
  Age: 63 Year
  Sex: Male
  Weight: 97 kg

DRUGS (8)
  1. OMEPRAZOLE [Interacting]
     Indication: PROPHYLAXIS AGAINST GASTROINTESTINAL ULCER
     Route: 048
     Dates: start: 20000101, end: 20090517
  2. NORSPAN [Suspect]
     Indication: PAIN
     Route: 062
     Dates: start: 20090508, end: 20090515
  3. DUSPATAL [Interacting]
     Indication: DIVERTICULUM
     Route: 048
     Dates: start: 20090101, end: 20090517
  4. AZUPROSTAT [Concomitant]
     Indication: BENIGN PROSTATIC HYPERPLASIA
     Route: 048
     Dates: start: 20090101, end: 20090517
  5. MUCOFALK [Concomitant]
     Indication: CONSTIPATION
     Route: 048
     Dates: start: 20070101
  6. NOVALGIN [Concomitant]
     Indication: PAIN
     Dosage: 25-0-30GGT
     Route: 048
     Dates: start: 20090101
  7. DEKRISTOL [Concomitant]
     Indication: OSTEOPOROSIS
     Route: 048
     Dates: start: 20090101
  8. CELEBREX [Concomitant]
     Indication: PAIN
     Route: 048
     Dates: start: 20081201

REACTIONS (2)
  - CONSTIPATION [None]
  - DRUG INTERACTION [None]
